FAERS Safety Report 6958315-9 (Version None)
Quarter: 2010Q3

REPORT INFORMATION
  Report Type: 
  Country: None (occurrence: None)
  Receive Date: 20100831
  Receipt Date: 20100825
  Transmission Date: 20110219
  Serious: Yes (Hospitalization)
  Sender: FDA-Public Use
  Company Number: A0878451A

PATIENT
  Age: 63 Year
  Sex: Male

DRUGS (1)
  1. AVANDIA [Suspect]
     Dosage: 10MG TWICE PER DAY
     Route: 048
     Dates: start: 20060101, end: 20081101

REACTIONS (1)
  - MYOCARDIAL INFARCTION [None]
